FAERS Safety Report 8127303-1 (Version None)
Quarter: 2012Q1

REPORT INFORMATION
  Report Type: 
  Country: None (occurrence: None)
  Receive Date: 20120210
  Receipt Date: 20120206
  Transmission Date: 20120608
  Serious: Yes (Other)
  Sender: FDA-Public Use
  Company Number: JP-BAYER-2012-011836

PATIENT
  Age: 32 Year
  Sex: Female
  Weight: 61 kg

DRUGS (3)
  1. GOREI-SAN [Concomitant]
     Dosage: DAILY DOSE 6 G
     Route: 048
  2. DROSPIRENONE AND ETHINYL ESTRADIOL [Suspect]
     Indication: DYSMENORRHOEA
     Dosage: 1 DF, QD
     Route: 048
     Dates: start: 20110808
  3. LOXONIN [Concomitant]
     Dosage: DAILY DOSE 2 DF
     Route: 048

REACTIONS (2)
  - HEPATITIS ACUTE [None]
  - LIVER DISORDER [None]
